FAERS Safety Report 8221177-6 (Version None)
Quarter: 2012Q1

REPORT INFORMATION
  Report Type: 
  Country: None (occurrence: None)
  Receive Date: 20120320
  Receipt Date: 20120315
  Transmission Date: 20120608
  Serious: No
  Sender: FDA-Public Use
  Company Number: US-TEVA-328540USA

PATIENT
  Sex: Female
  Weight: 47.67 kg

DRUGS (4)
  1. ABILIFY [Concomitant]
     Indication: DEPRESSION
  2. PLAN B ONE-STEP [Suspect]
     Indication: POST COITAL CONTRACEPTION
     Dosage: 1.5 MILLIGRAM;
     Route: 048
     Dates: start: 20120305, end: 20120305
  3. PLAN B ONE-STEP [Suspect]
     Dosage: 1.5 MILLIGRAM;
     Route: 048
     Dates: start: 20120305, end: 20120305
  4. LEXAPRO [Concomitant]
     Indication: DEPRESSION

REACTIONS (2)
  - VOMITING [None]
  - MENSTRUATION IRREGULAR [None]
